FAERS Safety Report 18905530 (Version 1)
Quarter: 2021Q1

REPORT INFORMATION
  Report Type: Spontaneous
  Country: US (occurrence: US)
  Receive Date: 20210217
  Receipt Date: 20210217
  Transmission Date: 20210420
  Serious: No
  Sender: FDA-Public Use
  Company Number: US-IMMUNOMEDICS, INC.-2020IMMU000672

PATIENT
  Age: 45 Year
  Sex: Female

DRUGS (2)
  1. TRODELVY [Suspect]
     Active Substance: SACITUZUMAB GOVITECAN-HZIY
     Indication: TRIPLE NEGATIVE BREAST CANCER
     Dosage: UNK, DAY 1 AND 8 OF 21 DAY CYCLE
     Route: 065
     Dates: start: 20200911, end: 20200911
  2. TRODELVY [Suspect]
     Active Substance: SACITUZUMAB GOVITECAN-HZIY
     Dosage: 540 MG/KG, DAY 1 AND 8 OF 21 DAY CYCLE
     Route: 065

REACTIONS (2)
  - Infusion site reaction [Not Recovered/Not Resolved]
  - Neutropenia [Not Recovered/Not Resolved]
